FAERS Safety Report 13132579 (Version 1)
Quarter: 2017Q1

REPORT INFORMATION
  Report Type: Spontaneous
  Country: US (occurrence: US)
  Receive Date: 20170120
  Receipt Date: 20170120
  Transmission Date: 20170428
  Serious: No
  Sender: FDA-Public Use
  Company Number: US-TEVA-678001USA

PATIENT
  Age: 80 Year
  Sex: Female

DRUGS (3)
  1. DIAZEPAM. [Concomitant]
     Active Substance: DIAZEPAM
     Indication: ANXIETY
  2. VERAPAMIL [Suspect]
     Active Substance: VERAPAMIL HYDROCHLORIDE
     Indication: BLOOD PRESSURE MEASUREMENT
     Dosage: 240 MILLIGRAM DAILY;
     Route: 048
     Dates: start: 20160520
  3. DIAZEPAM. [Concomitant]
     Active Substance: DIAZEPAM
     Indication: BLOOD PRESSURE MEASUREMENT
     Dosage: 10 MILLIGRAM DAILY;
     Route: 048

REACTIONS (5)
  - Heart rate increased [Unknown]
  - Drug ineffective [Unknown]
  - Blood pressure increased [Recovered/Resolved]
  - Chest discomfort [Recovered/Resolved]
  - Product substitution issue [Unknown]

NARRATIVE: CASE EVENT DATE: 201605
